FAERS Safety Report 9242928 (Version 2)
Quarter: 2014Q2

REPORT INFORMATION
  Report Type: Spontaneous
  Country: US (occurrence: US)
  Receive Date: 20130419
  Receipt Date: 20140415
  Transmission Date: 20141212
  Serious: Yes (Hospitalization)
  Sender: FDA-Public Use
  Company Number: US-B.I. PHARMACEUTICALS,INC./RIDGEFIELD-2013-BI-10152BP

PATIENT
  Sex: Male
  Weight: 66 kg

DRUGS (2)
  1. PRADAXA [Suspect]
     Indication: ATRIAL FIBRILLATION
     Route: 065
     Dates: start: 20110822, end: 20120827
  2. RAMIPRIL [Concomitant]
     Route: 065

REACTIONS (2)
  - Cerebral haemorrhage [Unknown]
  - Gastrointestinal haemorrhage [Unknown]
